FAERS Safety Report 12728513 (Version 1)
Quarter: 2016Q3

REPORT INFORMATION
  Report Type: Spontaneous
  Country: US (occurrence: US)
  Receive Date: 20160909
  Receipt Date: 20160909
  Transmission Date: 20161109
  Serious: Yes (Other)
  Sender: FDA-Public Use
  Company Number: US-BAYER-2016-174900

PATIENT
  Age: 38 Year
  Sex: Female

DRUGS (2)
  1. MIRENA [Suspect]
     Active Substance: LEVONORGESTREL
     Indication: ABDOMINAL PAIN
     Dosage: 20 MCG/24HR, CONT
     Route: 015
     Dates: start: 20160520, end: 20160831
  2. MIRENA [Suspect]
     Active Substance: LEVONORGESTREL
     Indication: AMENORRHOEA

REACTIONS (6)
  - Vaginal discharge [None]
  - Burning sensation [None]
  - Abdominal pain lower [Not Recovered/Not Resolved]
  - Infection [Recovered/Resolved]
  - Infection [None]
  - Off label use [None]

NARRATIVE: CASE EVENT DATE: 2016
